FAERS Safety Report 10171091 (Version 1)
Quarter: 2014Q2

REPORT INFORMATION
  Report Type: Report from Study
  Country: DE (occurrence: DE)
  Receive Date: 20140514
  Receipt Date: 20140514
  Transmission Date: 20141212
  Serious: Yes (Death)
  Sender: FDA-Public Use
  Company Number: PHHY2014DE056672

PATIENT
  Sex: Female
  Weight: 103 kg

DRUGS (6)
  1. AMINEURIN [Suspect]
     Indication: PAIN
     Dosage: 25 MG, PER DAY
     Dates: start: 201202, end: 20130910
  2. METFORMIN A L [Suspect]
     Indication: DIABETES MELLITUS
     Dosage: 1000 MG, PER DAY
     Dates: start: 2009, end: 20130910
  3. SITAGLIPTIN [Concomitant]
     Indication: DIABETES MELLITUS
     Dosage: 50 MG, PER DAY
     Dates: start: 20120810
  4. RAMIPRIL [Concomitant]
     Indication: HYPERTENSION
     Dosage: 2.5 MG, PER DAY
  5. FUROSEMIDE [Concomitant]
     Indication: HYPERTENSION
     Dosage: 250 MG, PER DAY
     Dates: start: 2009
  6. ACETYLSALICYLIC ACID [Concomitant]
     Indication: CEREBROVASCULAR ACCIDENT
     Dosage: 100 MG, PER DAY
     Dates: start: 2007

REACTIONS (2)
  - Renal failure [Fatal]
  - Blood creatinine increased [Fatal]
